FAERS Safety Report 21442713 (Version 1)
Quarter: 2022Q4

REPORT INFORMATION
  Report Type: Spontaneous
  Country: US (occurrence: US)
  Receive Date: 20221012
  Receipt Date: 20221012
  Transmission Date: 20230113
  Serious: Yes (Other)
  Sender: FDA-Public Use
  Company Number: US-SUN PHARMACEUTICAL INDUSTRIES LTD-2022R1-358225

PATIENT
  Age: 61 Year
  Sex: Female

DRUGS (3)
  1. OXYCODONE [Suspect]
     Active Substance: OXYCODONE
     Indication: Musculoskeletal pain
     Dosage: 5 MILLIGRAM, QID
     Route: 065
  2. ACETAMINOPHEN\OXYCODONE HYDROCHLORIDE [Concomitant]
     Active Substance: ACETAMINOPHEN\OXYCODONE HYDROCHLORIDE
     Indication: Musculoskeletal pain
     Dosage: UNK (5-10 MG, EVERY 4-6 HRS)
     Route: 065
  3. GABAPENTIN [Concomitant]
     Active Substance: GABAPENTIN
     Indication: Musculoskeletal pain
     Dosage: 900 MILLIGRAM, DAILY
     Route: 065

REACTIONS (2)
  - Drug withdrawal syndrome [Unknown]
  - Psychotic disorder [Recovering/Resolving]
